FAERS Safety Report 14477744 (Version 1)
Quarter: 2018Q1

REPORT INFORMATION
  Report Type: Report from Study
  Country: US (occurrence: US)
  Receive Date: 20180201
  Receipt Date: 20180201
  Transmission Date: 20180509
  Serious: No
  Sender: FDA-Public Use
  Company Number: US-EXELIXIS-CABO-17009616

PATIENT
  Sex: Male

DRUGS (5)
  1. CABOMETYX [Suspect]
     Active Substance: CABOZANTINIB S-MALATE
     Indication: LYMPHOMA
     Dosage: 60 MG, QD
     Route: 048
     Dates: start: 20170525
  2. MORPHINE [Concomitant]
     Active Substance: MORPHINE
  3. OXYCODONE/APAP [Concomitant]
     Active Substance: ACETAMINOPHEN\OXYCODONE HYDROCHLORIDE
  4. SENNA [Concomitant]
     Active Substance: SENNA LEAF\SENNOSIDES\SENNOSIDES A AND B
  5. GABAPENTIN. [Concomitant]
     Active Substance: GABAPENTIN

REACTIONS (5)
  - Dysuria [Unknown]
  - Nausea [Unknown]
  - Off label use [Unknown]
  - Abdominal pain [Unknown]
  - Malignant neoplasm progression [Unknown]
